FAERS Safety Report 15808319 (Version 6)
Quarter: 2020Q1

REPORT INFORMATION
  Report Type: Report from Study
  Country: US (occurrence: US)
  Receive Date: 20190110
  Receipt Date: 20200310
  Transmission Date: 20200409
  Serious: Yes (Hospitalization)
  Sender: FDA-Public Use
  Company Number: US-GILEAD-2018-0378690

PATIENT
  Age: 65 Year
  Sex: Female
  Weight: 56.4 kg

DRUGS (68)
  1. MAG-OX [Concomitant]
     Active Substance: MAGNESIUM OXIDE
  2. ZOFRAN [Concomitant]
     Active Substance: ONDANSETRON HYDROCHLORIDE
  3. METOPROLOL SUCCINATE. [Concomitant]
     Active Substance: METOPROLOL SUCCINATE
     Dosage: 25,MG,DAILY
     Route: 048
     Dates: start: 20180514
  4. ONDANSETRON [Concomitant]
     Active Substance: ONDANSETRON
     Dosage: 8,MG,AS NECESSARY
     Route: 048
     Dates: start: 20180604
  5. FEXOFENADINE [Concomitant]
     Active Substance: FEXOFENADINE HYDROCHLORIDE
     Dosage: 180,MG,DAILY
     Route: 048
     Dates: start: 20180925
  6. DEXAMETHASONE. [Concomitant]
     Active Substance: DEXAMETHASONE
     Dosage: 30,MG,DAILY
     Route: 048
     Dates: start: 20181101
  7. ACETYLCYSTEINE. [Concomitant]
     Active Substance: ACETYLCYSTEINE
     Dosage: 4,ML,FOUR TIMES DAILY
     Route: 050
     Dates: start: 20181202, end: 20181219
  8. CHLORHEXIDINE GLUCONATE. [Concomitant]
     Active Substance: CHLORHEXIDINE GLUCONATE
     Dosage: UNKNOWN,OTHER,DAILY
     Route: 061
     Dates: start: 20181202, end: 20190106
  9. LEVETIRACETAM. [Concomitant]
     Active Substance: LEVETIRACETAM
     Dosage: 750,MG,TWICE DAILY
     Route: 048
     Dates: start: 20181204, end: 20181205
  10. AXICABTAGENE CILOLEUCEL [Suspect]
     Active Substance: AXICABTAGENE CILOLEUCEL
     Indication: DIFFUSE LARGE B-CELL LYMPHOMA
     Dosage: 68 ML, ONCE
     Route: 042
     Dates: start: 20181205, end: 20181205
  11. MESNA. [Suspect]
     Active Substance: MESNA
     Indication: PROPHYLAXIS
     Dosage: 125 MG/M2, BID
     Route: 042
     Dates: start: 20181130, end: 20181202
  12. CALCIUM CARBONATE WITH D3 [Concomitant]
     Active Substance: CALCIUM CARBONATE\CHOLECALCIFEROL
  13. LEVOTHYROXINE. [Concomitant]
     Active Substance: LEVOTHYROXINE
     Dosage: UNK
     Dates: start: 201912
  14. DELTASONE [Concomitant]
     Active Substance: PREDNISONE
  15. FLUTICASONE. [Concomitant]
     Active Substance: FLUTICASONE
     Dosage: 1,OTHER,TWICE DAILY
     Route: 055
     Dates: start: 20180925
  16. ENOXAPARIN [Concomitant]
     Active Substance: ENOXAPARIN
     Dosage: 40,MG,DAILY
     Route: 058
     Dates: start: 20190103, end: 20190103
  17. LEVOTHYROXINE. [Concomitant]
     Active Substance: LEVOTHYROXINE
     Dosage: 50,UG,DAILY
     Route: 048
     Dates: start: 20180514
  18. COMPAZINE [Concomitant]
     Active Substance: PROCHLORPERAZINE MALEATE
  19. VITAMINS NOS [Concomitant]
     Active Substance: VITAMINS
  20. CRANBERRY [VACCINIUM MACROCARPON] [Concomitant]
  21. CALCIUM CARBONATE. [Concomitant]
     Active Substance: CALCIUM CARBONATE
     Dosage: 600,MG,DAILY
     Route: 048
     Dates: start: 20180514
  22. ONDANSETRON [Concomitant]
     Active Substance: ONDANSETRON
     Dosage: 8,MG,AS NECESSARY
     Route: 048
     Dates: start: 20181202, end: 20181219
  23. ONDANSETRON [Concomitant]
     Active Substance: ONDANSETRON
     Dosage: 4,MG,ONCE
     Route: 042
     Dates: start: 20190228, end: 20190228
  24. CHLORHEXIDINE GLUCONATE. [Concomitant]
     Active Substance: CHLORHEXIDINE GLUCONATE
     Dosage: 1,OTHER,DAILY
     Route: 061
     Dates: start: 20200303
  25. POTASSIUM CHLORIDE. [Concomitant]
     Active Substance: POTASSIUM CHLORIDE
     Dosage: 20,OTHER,ONCE
     Route: 048
     Dates: start: 20200306, end: 20200306
  26. DIPHENHYDRAMINE. [Concomitant]
     Active Substance: DIPHENHYDRAMINE
     Dosage: 25-50,MG,AS NECESSARY
     Route: 042
     Dates: start: 20181205, end: 20181206
  27. ZYLOPRIM [Concomitant]
     Active Substance: ALLOPURINOL
  28. DOCUSATE SODIUM. [Concomitant]
     Active Substance: DOCUSATE SODIUM
     Dosage: 100,MG,AS NECESSARY
     Route: 048
     Dates: start: 20181203, end: 20181215
  29. PROCHLORPERAZINE. [Concomitant]
     Active Substance: PROCHLORPERAZINE
     Dosage: 10,MG,AS NECESSARY
     Route: 048
     Dates: start: 20181202, end: 20181219
  30. GUAIFENESIN. [Concomitant]
     Active Substance: GUAIFENESIN
     Dosage: 200,MG,AS NECESSARY
     Route: 048
     Dates: start: 20181202, end: 20181219
  31. LORAZEPAM. [Concomitant]
     Active Substance: LORAZEPAM
     Dosage: 0.25,MG,AS NECESSARY
     Route: 048
     Dates: start: 20181202, end: 20181203
  32. POTASSIUM CHLORIDE. [Concomitant]
     Active Substance: POTASSIUM CHLORIDE
     Dosage: 20-80,OTHER,AS NECESSARY
     Route: 048
     Dates: start: 20181202, end: 20181203
  33. LEVETIRACETAM. [Concomitant]
     Active Substance: LEVETIRACETAM
     Dosage: 750,MG,TWICE DAILY
     Route: 048
     Dates: start: 20190103, end: 20190105
  34. METOPROLOL TARTRATE. [Concomitant]
     Active Substance: METOPROLOL TARTRATE
     Dosage: 6.25,MG,FOUR TIMES DAILY
     Route: 048
     Dates: start: 20190103, end: 20190106
  35. ACYCLOVIR [ACICLOVIR] [Concomitant]
     Active Substance: ACYCLOVIR
     Dosage: 400,MG,THREE TIMES DAILY
     Route: 048
     Dates: start: 20181205, end: 20181219
  36. ACYCLOVIR [ACICLOVIR] [Concomitant]
     Active Substance: ACYCLOVIR
     Dosage: 400,MG,THREE TIMES DAILY
     Route: 048
     Dates: start: 20190103, end: 20190106
  37. CYCLOPHOSPHAMIDE. [Suspect]
     Active Substance: CYCLOPHOSPHAMIDE
     Indication: BONE MARROW CONDITIONING REGIMEN
     Dosage: 500 MG/M2, QD
     Route: 042
     Dates: start: 20181130, end: 20181202
  38. DOCUSATE SODIUM. [Concomitant]
     Active Substance: DOCUSATE SODIUM
     Dosage: 100,MG,AS NECESSARY
     Route: 048
     Dates: start: 20180514
  39. FEXOFENADINE [Concomitant]
     Active Substance: FEXOFENADINE HYDROCHLORIDE
     Dosage: 180,MG,DAILY
     Route: 048
     Dates: start: 20190103, end: 20190106
  40. POTASSIUM CHLORIDE. [Concomitant]
     Active Substance: POTASSIUM CHLORIDE
     Dosage: 20-80,OTHER,AS NECESSARY
     Route: 048
     Dates: start: 20190103, end: 20190106
  41. CALCIUM CARBONATE/VITAMIN D3 [Concomitant]
     Active Substance: CALCIUM CARBONATE\CHOLECALCIFEROL
     Dosage: 1,OTHER,DAILY
     Route: 048
     Dates: start: 20181203, end: 20181219
  42. FLUDARABINE [Suspect]
     Active Substance: FLUDARABINE PHOSPHATE
     Indication: BONE MARROW CONDITIONING REGIMEN
     Dosage: 30 MG/M2, QD
     Route: 042
     Dates: start: 20181130, end: 20181202
  43. HIBICLENS [Concomitant]
     Active Substance: CHLORHEXIDINE GLUCONATE
  44. ROBITUSSIN (GUAIFENESIN) [Concomitant]
     Active Substance: GUAIFENESIN
  45. SODIUM CHLORIDE. [Concomitant]
     Active Substance: SODIUM CHLORIDE
  46. ALBUTEROL [SALBUTAMOL] [Concomitant]
     Active Substance: ALBUTEROL
  47. MAGNESIUM OXIDE. [Concomitant]
     Active Substance: MAGNESIUM OXIDE
     Dosage: 400,MG,ONCE
     Route: 048
     Dates: start: 20200305, end: 20200305
  48. GUAIFENESIN. [Concomitant]
     Active Substance: GUAIFENESIN
     Dosage: 200,MG,AS NECESSARY
     Route: 048
     Dates: start: 20200304, end: 20200307
  49. LORAZEPAM. [Concomitant]
     Active Substance: LORAZEPAM
     Dosage: 0.25,MG,ONCE
     Route: 048
     Dates: start: 20200304, end: 20200304
  50. ALLOPURINOL. [Concomitant]
     Active Substance: ALLOPURINOL
     Dosage: 300,MG,DAILY
     Route: 048
     Dates: start: 20181203, end: 20181205
  51. IPRATROPIUM BROMIDE. [Concomitant]
     Active Substance: IPRATROPIUM BROMIDE
     Dosage: 500,UG,AS NECESSARY
     Route: 050
     Dates: start: 20181202, end: 20181206
  52. TOPROL XL [Concomitant]
     Active Substance: METOPROLOL SUCCINATE
  53. DOCUSATE SODIUM. [Concomitant]
     Active Substance: DOCUSATE SODIUM
     Dosage: 100,MG,TWICE DAILY
     Route: 048
     Dates: start: 20190103, end: 20190103
  54. ACETYLCYSTEINE. [Concomitant]
     Active Substance: ACETYLCYSTEINE
     Dosage: 4,ML,FOUR TIMES DAILY
     Route: 055
     Dates: start: 20190103, end: 20190106
  55. ENOXAPARIN [Concomitant]
     Active Substance: ENOXAPARIN
     Dosage: 40,MG,DAILY
     Route: 058
     Dates: start: 20181203, end: 20181219
  56. SULFAMETHOXAZOLE;TRIMETHOPRIM [Concomitant]
     Active Substance: SULFAMETHOXAZOLE\TRIMETHOPRIM
     Dosage: 400-80,MG,DAILY
     Route: 048
     Dates: start: 20181204, end: 20181204
  57. SODIUM CHLORIDE IV [Concomitant]
     Active Substance: SODIUM CHLORIDE
     Dosage: 10,OTHER,CONTINUOUS
     Route: 042
     Dates: start: 20181205, end: 20181205
  58. LIDOCAINE. [Concomitant]
     Active Substance: LIDOCAINE
     Dosage: 1,OTHER,AS NECESSARY
     Route: 062
     Dates: start: 20181207, end: 20181209
  59. MUCOMYST [ACETYLCYSTEINE] [Concomitant]
  60. PREVNAR 13 [Concomitant]
     Active Substance: PNEUMOCOCCAL 13-VALENT CONJUGATE VACCINE
  61. MAGNESIUM OXIDE. [Concomitant]
     Active Substance: MAGNESIUM OXIDE
     Dosage: 200,MG,DAILY
     Route: 048
     Dates: start: 20180514
  62. ONDANSETRON [Concomitant]
     Active Substance: ONDANSETRON
     Dosage: 4,MG,ONCE
     Route: 042
     Dates: start: 20190314, end: 20190314
  63. PROCHLORPERAZINE. [Concomitant]
     Active Substance: PROCHLORPERAZINE
     Dosage: 10,MG,AS NECESSARY
     Route: 048
     Dates: start: 20180604
  64. LEVOFLOXACIN. [Concomitant]
     Active Substance: LEVOFLOXACIN
     Dosage: 500,MG,DAILY
     Route: 048
     Dates: start: 20181203, end: 20181205
  65. LEVOFLOXACIN. [Concomitant]
     Active Substance: LEVOFLOXACIN
     Dosage: 750,MG,DAILY
     Route: 048
     Dates: start: 20200303, end: 20200307
  66. METOPROLOL TARTRATE. [Concomitant]
     Active Substance: METOPROLOL TARTRATE
     Dosage: 6.25,MG,FOUR TIMES DAILY
     Route: 048
     Dates: start: 20181205, end: 20181219
  67. NYSTATIN. [Concomitant]
     Active Substance: NYSTATIN
     Dosage: 500000,OTHER,FOUR TIMES DAILY
     Route: 050
     Dates: start: 20181206, end: 20181219
  68. SODIUM CHLORIDE 0.9% [Concomitant]
     Active Substance: SODIUM CHLORIDE
     Dosage: 100,OTHER,CONTINUOUS
     Route: 042
     Dates: start: 20181213, end: 20181214

REACTIONS (4)
  - Pneumonia [Recovered/Resolved]
  - Pneumonia [Unknown]
  - Pneumonia [Not Recovered/Not Resolved]
  - Pyrexia [Recovered/Resolved]

NARRATIVE: CASE EVENT DATE: 20181202
